FAERS Safety Report 4706677-5 (Version None)
Quarter: 2005Q3

REPORT INFORMATION
  Report Type: 
  Country: None (occurrence: None)
  Receive Date: 20050705
  Receipt Date: 20050613
  Transmission Date: 20060218
  Serious: Yes (Hospitalization)
  Sender: FDA-Public Use
  Company Number: 2005AP03347

PATIENT
  Age: 26825 Day
  Sex: Female
  Weight: 41.2 kg

DRUGS (9)
  1. IRESSA [Suspect]
     Indication: NON-SMALL CELL LUNG CANCER
     Route: 048
     Dates: start: 20050525, end: 20050611
  2. IRESSA [Suspect]
     Indication: LUNG ADENOCARCINOMA
     Route: 048
     Dates: start: 20050525, end: 20050611
  3. PANTOSIN [Concomitant]
     Indication: CONSTIPATION
     Route: 048
     Dates: start: 20050419, end: 20050607
  4. HEAVY MAGNESIUM OXIDE [Concomitant]
     Indication: CONSTIPATION
     Route: 048
     Dates: start: 20050419, end: 20050607
  5. PURSENNID [Concomitant]
     Indication: CONSTIPATION
     Route: 048
     Dates: start: 20050419, end: 20050607
  6. CODEINE PHOSPHATE [Concomitant]
     Indication: COUGH
     Route: 048
     Dates: start: 20050427, end: 20050610
  7. AMOBAN [Concomitant]
     Indication: INSOMNIA
     Route: 048
     Dates: start: 20050509, end: 20050607
  8. PACLITAXEL [Concomitant]
     Dates: start: 20041222, end: 20050412
  9. CARBOPLATIN [Concomitant]
     Dates: start: 20041222, end: 20050412

REACTIONS (4)
  - BACK PAIN [None]
  - FACE OEDEMA [None]
  - NAUSEA [None]
  - VERTIGO [None]
